FAERS Safety Report 13628790 (Version 3)
Quarter: 2022Q4

REPORT INFORMATION
  Report Type: Spontaneous
  Country: US (occurrence: US)
  Receive Date: 20170607
  Receipt Date: 20221006
  Transmission Date: 20230112
  Serious: No
  Sender: FDA-Public Use
  Company Number: US-PFIZER INC-2016584439

PATIENT
  Age: 46 Year
  Sex: Female
  Weight: 79 kg

DRUGS (9)
  1. DOCETAXEL [Suspect]
     Active Substance: DOCETAXEL
     Indication: Chemotherapy
     Dosage: 75 MG/M2, EVERY 3 WEEKS (FOUR CYCLES)
     Dates: start: 20110829, end: 20111111
  2. DOCETAXEL [Suspect]
     Active Substance: DOCETAXEL
     Indication: Invasive ductal breast carcinoma
  3. NEOSAR [Concomitant]
     Active Substance: CYCLOPHOSPHAMIDE
     Indication: Chemotherapy
     Dosage: UNK
  4. ADRIAMYCIN [Concomitant]
     Active Substance: DOXORUBICIN HYDROCHLORIDE
     Indication: Chemotherapy
     Dosage: UNK
  5. DOXIL [Concomitant]
     Active Substance: DOXORUBICIN HYDROCHLORIDE
     Indication: Chemotherapy
     Dosage: UNK
  6. SIMVASTATIN [Concomitant]
     Active Substance: SIMVASTATIN
     Dosage: UNK, REGULARLY
     Dates: start: 2012
  7. TAXOTERE [Concomitant]
     Active Substance: DOCETAXEL
     Dosage: UNK
  8. CYCLOPHOSPHAMIDE [Concomitant]
     Active Substance: CYCLOPHOSPHAMIDE
     Indication: Chemotherapy
     Dosage: UNK, EVERY 3 WEEKS (FOUR CYCLES)
  9. DOXORUBICIN [Concomitant]
     Active Substance: DOXORUBICIN
     Indication: Chemotherapy
     Dosage: UNK, EVERY 3 WEEKS (FOUR CYCLES)

REACTIONS (5)
  - Alopecia [Not Recovered/Not Resolved]
  - Hair texture abnormal [Not Recovered/Not Resolved]
  - Hair disorder [Not Recovered/Not Resolved]
  - Hair colour changes [Not Recovered/Not Resolved]
  - Madarosis [Not Recovered/Not Resolved]

NARRATIVE: CASE EVENT DATE: 20120101
